FAERS Safety Report 24181705 (Version 2)
Quarter: 2024Q3

REPORT INFORMATION
  Report Type: Spontaneous
  Country: US (occurrence: US)
  Receive Date: 20240807
  Receipt Date: 20240830
  Transmission Date: 20241017
  Serious: No
  Sender: VIIV
  Company Number: US-ViiV Healthcare Limited-114219

PATIENT
  Age: 50 Year
  Sex: Male

DRUGS (3)
  1. CABOTEGRAVIR [Suspect]
     Active Substance: CABOTEGRAVIR
     Indication: Product used for unknown indication
     Dosage: 600 MG
     Route: 042
     Dates: start: 202405, end: 20240724
  2. CABOTEGRAVIR [Suspect]
     Active Substance: CABOTEGRAVIR
  3. CABOTEGRAVIR [Suspect]
     Active Substance: CABOTEGRAVIR

REACTIONS (4)
  - Fatigue [Recovered/Resolved with Sequelae]
  - Pyrexia [Unknown]
  - Chills [Unknown]
  - Impaired work ability [Unknown]

NARRATIVE: CASE EVENT DATE: 20240621
